FAERS Safety Report 14664763 (Version 3)
Quarter: 2018Q2

REPORT INFORMATION
  Report Type: Report from Study
  Country: CN (occurrence: CN)
  Receive Date: 20180321
  Receipt Date: 20180416
  Transmission Date: 20180711
  Serious: Yes (Hospitalization)
  Sender: FDA-Public Use
  Company Number: US-ASTRAZENECA-2018SE29192

PATIENT
  Age: 25144 Day
  Sex: Male
  Weight: 49.9 kg

DRUGS (19)
  1. GLYCOPYRRONIUM + FORMOTEROL FUMARATE INHALATION AEROSOL (PEARL) [Suspect]
     Active Substance: GLYCOPYRRONIUM\FORMOTEROL FUMARATE
     Indication: CHRONIC OBSTRUCTIVE PULMONARY DISEASE
     Dosage: 14.4/9.6 ???G EX-ACTUATOR BID
     Route: 055
     Dates: start: 20171031, end: 20180221
  2. BERAPROST SODIUM [Concomitant]
     Active Substance: BERAPROST SODIUM
     Indication: PERIPHERAL ARTERIAL OCCLUSIVE DISEASE
     Dosage: 2; TWO TIMES A DAY
     Route: 048
     Dates: start: 20180110
  3. METHYLPREDNISOLONE SODIUM SUCCINATE. [Concomitant]
     Active Substance: METHYLPREDNISOLONE SODIUM SUCCINATE
     Indication: CHRONIC OBSTRUCTIVE PULMONARY DISEASE
     Dates: start: 20180221, end: 20180225
  4. HALCINONIDE [Concomitant]
     Active Substance: HALCINONIDE
     Indication: PSORIASIS
     Dosage: TWO TIMES A DAY
     Route: 061
     Dates: start: 20170323
  5. SODIUM LACTATE. [Concomitant]
     Active Substance: SODIUM LACTATE
     Indication: EMERGENCY CARE
     Route: 042
     Dates: start: 20180221, end: 20180221
  6. PULMICORT TURBUHALER [Concomitant]
     Active Substance: BUDESONIDE
     Indication: CHRONIC OBSTRUCTIVE PULMONARY DISEASE
     Route: 055
     Dates: start: 20171010, end: 20171030
  7. CALCIUM CARBONATE. [Concomitant]
     Active Substance: CALCIUM CARBONATE
     Indication: ADVERSE EVENT
     Route: 048
     Dates: start: 2016
  8. SELENIUM [Concomitant]
     Active Substance: SELENIUM
     Indication: PSORIASIS
     Dosage: TWICE A WEEK
     Route: 061
     Dates: start: 20170223
  9. ROSUVASTATIN. [Concomitant]
     Active Substance: ROSUVASTATIN
     Indication: PERIPHERAL ARTERIAL OCCLUSIVE DISEASE
     Dosage: ONGOING
     Route: 048
     Dates: start: 20180110
  10. LEVOFLOXACIN. [Concomitant]
     Active Substance: LEVOFLOXACIN
     Indication: CHRONIC OBSTRUCTIVE PULMONARY DISEASE
     Route: 042
     Dates: start: 20180221, end: 20180221
  11. OMEPRAZOLE. [Concomitant]
     Active Substance: OMEPRAZOLE
     Indication: ANTIPYRESIS
     Route: 042
     Dates: start: 20180221, end: 20180221
  12. THYMALFASIN [Concomitant]
     Active Substance: THYMALFASIN
     Indication: ADVERSE EVENT
     Route: 058
     Dates: start: 2016
  13. SPIRIVA [Concomitant]
     Active Substance: TIOTROPIUM BROMIDE MONOHYDRATE
     Indication: CHRONIC OBSTRUCTIVE PULMONARY DISEASE
     Route: 055
     Dates: start: 2008, end: 20171010
  14. AMINOPHYLLINE. [Concomitant]
     Active Substance: AMINOPHYLLINE
     Indication: CHRONIC OBSTRUCTIVE PULMONARY DISEASE
     Route: 048
     Dates: start: 20171113, end: 20171127
  15. INDOMETACIN [Concomitant]
     Active Substance: INDOMETHACIN
     Indication: ANTIPYRESIS
     Route: 061
     Dates: start: 20180221, end: 20180223
  16. AMBROXOL HYDROCHLORIDE [Concomitant]
     Active Substance: AMBROXOL HYDROCHLORIDE
     Indication: CHRONIC OBSTRUCTIVE PULMONARY DISEASE
     Route: 042
     Dates: start: 20180222, end: 20180225
  17. GLYCOPYRRONIUM + FORMOTEROL FUMARATE INHALATION AEROSOL (PEARL) [Suspect]
     Active Substance: GLYCOPYRRONIUM\FORMOTEROL FUMARATE
     Indication: CHRONIC OBSTRUCTIVE PULMONARY DISEASE
     Dosage: 14.4/9.6 ???G EX-ACTUATOR BID
     Route: 055
     Dates: start: 20180305
  18. ASPIRIN ENTERIC-COATED TABLETS [Concomitant]
     Active Substance: ASPIRIN
     Indication: PERIPHERAL ARTERIAL OCCLUSIVE DISEASE
     Dosage: 1; TWO TIMES A DAY
     Route: 048
     Dates: start: 20180124
  19. PANTOPRAZOLE SODIUM. [Concomitant]
     Active Substance: PANTOPRAZOLE SODIUM
     Indication: EMERGENCY CARE
     Route: 042
     Dates: start: 20180222, end: 20180225

REACTIONS (1)
  - Influenza [Recovered/Resolved]

NARRATIVE: CASE EVENT DATE: 20180301
